FAERS Safety Report 15491515 (Version 4)
Quarter: 2019Q2

REPORT INFORMATION
  Report Type: Spontaneous
  Country: US (occurrence: US)
  Receive Date: 20181012
  Receipt Date: 20190621
  Transmission Date: 20190711
  Serious: Yes (Other)
  Sender: FDA-Public Use
  Company Number: US-ASTRAZENECA-2018SF30969

PATIENT
  Age: 20935 Day
  Sex: Male
  Weight: 88.5 kg

DRUGS (40)
  1. ROMAZICON [Concomitant]
     Active Substance: FLUMAZENIL
  2. ROSUVASTATIN. [Concomitant]
     Active Substance: ROSUVASTATIN
  3. SODIUM BICARBONATE. [Concomitant]
     Active Substance: SODIUM BICARBONATE
  4. LIDOCAINE. [Concomitant]
     Active Substance: LIDOCAINE
  5. OXYCONTIN [Concomitant]
     Active Substance: OXYCODONE HYDROCHLORIDE
  6. HYDROCODONE-ACETAMINOPHEN [Concomitant]
     Active Substance: ACETAMINOPHEN\HYDROCODONE
  7. MOVIPREP [Concomitant]
     Active Substance: ASCORBIC ACID\POLYETHYLENE GLYCOL 3350\POTASSIUM CHLORIDE\SODIUM ASCORBATE\SODIUM CHLORIDE\SODIUM SULFATE
  8. ARTHROTEC [Concomitant]
     Active Substance: DICLOFENAC SODIUM\MISOPROSTOL
  9. DIAZEPAM. [Concomitant]
     Active Substance: DIAZEPAM
  10. TRAZODONE [Concomitant]
     Active Substance: TRAZODONE HYDROCHLORIDE
  11. ZANTAC [Concomitant]
     Active Substance: RANITIDINE HYDROCHLORIDE
  12. ZOFRAN [Concomitant]
     Active Substance: ONDANSETRON HYDROCHLORIDE
  13. PROMETHAZINE [Concomitant]
     Active Substance: PROMETHAZINE\PROMETHAZINE HYDROCHLORIDE
  14. TOUJEO [Concomitant]
     Active Substance: INSULIN GLARGINE
  15. NEXIUM [Suspect]
     Active Substance: ESOMEPRAZOLE MAGNESIUM
     Indication: GASTROOESOPHAGEAL REFLUX DISEASE
     Route: 048
     Dates: start: 200903, end: 201512
  16. NEXIUM [Suspect]
     Active Substance: ESOMEPRAZOLE MAGNESIUM
     Indication: GASTROOESOPHAGEAL REFLUX DISEASE
     Route: 048
     Dates: start: 20090914
  17. NOVOLOG [Concomitant]
     Active Substance: INSULIN ASPART
  18. XYLOCAINE [Concomitant]
     Active Substance: LIDOCAINE HYDROCHLORIDE
  19. CLARITHROMYCIN. [Concomitant]
     Active Substance: CLARITHROMYCIN
  20. ATENOLOL. [Concomitant]
     Active Substance: ATENOLOL
  21. VITAMIN D [Concomitant]
     Active Substance: VITAMIN D NOS
  22. DEXPAK [Concomitant]
     Active Substance: DEXAMETHASONE
  23. NEXIUM [Suspect]
     Active Substance: ESOMEPRAZOLE MAGNESIUM
     Indication: GASTROOESOPHAGEAL REFLUX DISEASE
     Route: 048
     Dates: start: 20090306
  24. RANITIDINE. [Concomitant]
     Active Substance: RANITIDINE
  25. TYLENOL [Concomitant]
     Active Substance: ACETAMINOPHEN
  26. CIPROFLOXACIN HYDROCHLORIDE. [Concomitant]
     Active Substance: CIPROFLOXACIN HYDROCHLORIDE
  27. PROPOFOL. [Concomitant]
     Active Substance: PROPOFOL
  28. DOXEPIN [Concomitant]
     Active Substance: DOXEPIN
  29. AMOXICILLIN. [Concomitant]
     Active Substance: AMOXICILLIN
  30. CIPRO [Concomitant]
     Active Substance: CIPROFLOXACIN HYDROCHLORIDE
  31. AZELASTINE. [Concomitant]
     Active Substance: AZELASTINE HYDROCHLORIDE
  32. OLOPATADINE. [Concomitant]
     Active Substance: OLOPATADINE
  33. DOXEPIN [Concomitant]
     Active Substance: DOXEPIN
  34. VITAMIN D3 [Concomitant]
     Active Substance: CHOLECALCIFEROL
  35. CRESTOR [Concomitant]
     Active Substance: ROSUVASTATIN CALCIUM
  36. VERSED [Concomitant]
     Active Substance: MIDAZOLAM HYDROCHLORIDE
  37. ADRENALIN [Concomitant]
     Active Substance: EPINEPHRINE
  38. LOTEMAX [Concomitant]
     Active Substance: LOTEPREDNOL ETABONATE
  39. METHYLPREDNISOLONE. [Concomitant]
     Active Substance: METHYLPREDNISOLONE
  40. FLONASE [Concomitant]
     Active Substance: FLUTICASONE PROPIONATE

REACTIONS (4)
  - End stage renal disease [Unknown]
  - Renal failure [Unknown]
  - Chronic kidney disease [Not Recovered/Not Resolved]
  - Acute kidney injury [Unknown]

NARRATIVE: CASE EVENT DATE: 20090419
